FAERS Safety Report 6757972-X (Version None)
Quarter: 2010Q2

REPORT INFORMATION
  Report Type: 
  Country: None (occurrence: None)
  Receive Date: 20100604
  Receipt Date: 20100604
  Transmission Date: 20101027
  Serious: Yes (Hospitalization)
  Sender: FDA-Public Use
  Company Number: None

PATIENT
  Age: 36 Year
  Sex: Male
  Weight: 127.0072 kg

DRUGS (2)
  1. ROLAIDS [Suspect]
     Indication: ABDOMINAL DISTENSION
     Dosage: 4 TO 6 DAILY PO
     Route: 048
     Dates: start: 20100530, end: 20100603
  2. ROLAIDS [Suspect]
     Indication: DYSPEPSIA
     Dosage: 4 TO 6 DAILY PO
     Route: 048
     Dates: start: 20100530, end: 20100603

REACTIONS (4)
  - ABDOMINAL DISTENSION [None]
  - DECREASED APPETITE [None]
  - PAIN [None]
  - PRODUCT QUALITY ISSUE [None]
